FAERS Safety Report 6644856-0 (Version None)
Quarter: 2010Q1

REPORT INFORMATION
  Report Type: 
  Country: None (occurrence: None)
  Receive Date: 20100317
  Receipt Date: 20100301
  Transmission Date: 20100710
  Serious: Yes (Hospitalization, Other)
  Sender: FDA-Public Use
  Company Number: 2009SP021931

PATIENT
  Age: 24 Year
  Sex: Female
  Weight: 65.7716 kg

DRUGS (6)
  1. NUVARING [Suspect]
     Indication: CONTRACEPTION
     Dates: start: 20070212, end: 20070901
  2. NEXIUM [Concomitant]
  3. HYDROCODONE [Concomitant]
  4. BACTRIM DS [Concomitant]
  5. PLAN B [Concomitant]
  6. DOXYCYCLINE [Concomitant]

REACTIONS (31)
  - BACTERIAL INFECTION [None]
  - BLOOD POTASSIUM DECREASED [None]
  - CANDIDIASIS [None]
  - CASTLEMAN'S DISEASE [None]
  - CERVICAL DYSPLASIA [None]
  - CHEST PAIN [None]
  - COELIAC DISEASE [None]
  - DEPRESSION [None]
  - DYSMENORRHOEA [None]
  - GRANULOMA [None]
  - HILAR LYMPHADENOPATHY [None]
  - HISTOPLASMOSIS [None]
  - INFECTION [None]
  - INTERNATIONAL NORMALISED RATIO INCREASED [None]
  - IRON DEFICIENCY ANAEMIA [None]
  - LEUKOPENIA [None]
  - LYMPHOMA [None]
  - MASS [None]
  - MENORRHAGIA [None]
  - MIGRAINE [None]
  - NEOPLASM MALIGNANT [None]
  - OCCULT BLOOD POSITIVE [None]
  - PEPTIC ULCER [None]
  - PROTHROMBIN TIME PROLONGED [None]
  - PULMONARY EMBOLISM [None]
  - REFUSAL OF TREATMENT BY PATIENT [None]
  - ROAD TRAFFIC ACCIDENT [None]
  - SARCOIDOSIS [None]
  - SMEAR CERVIX ABNORMAL [None]
  - UTERINE ENLARGEMENT [None]
  - UTERINE MALPOSITION [None]
